FAERS Safety Report 10612182 (Version 1)
Quarter: 2014Q4

REPORT INFORMATION
  Report Type: Spontaneous
  Country: BR (occurrence: BR)
  Receive Date: 20141127
  Receipt Date: 20141127
  Transmission Date: 20150529
  Serious: Yes (Other)
  Sender: FDA-Public Use
  Company Number: BR-AMGEN-BRASP2014091875

PATIENT
  Age: 70 Year
  Sex: Male
  Weight: 99 kg

DRUGS (8)
  1. LASIX [Concomitant]
     Active Substance: FUROSEMIDE
     Dosage: STRENGTH 40 MG
  2. LOSARTAN [Concomitant]
     Active Substance: LOSARTAN
     Dosage: STRENGTH 100 MG
  3. DEPURA [Concomitant]
     Active Substance: CHOLECALCIFEROL
     Dosage: STRENGTH 200 MG
  4. LEVOID [Concomitant]
     Active Substance: LEVOTHYROXINE
     Dosage: STRENGTH 50 MG
  5. MONOCORDIL [Concomitant]
     Active Substance: ISOSORBIDE MONONITRATE
     Dosage: STRENGTH 20 MG
  6. ENBREL [Suspect]
     Active Substance: ETANERCEPT
     Indication: RHEUMATOID ARTHRITIS
     Dosage: 50 MG, ONCE WEEKLY
     Route: 065
     Dates: start: 20141017
  7. SIMVASTATIN. [Concomitant]
     Active Substance: SIMVASTATIN
     Dosage: STRENGTH 20 MG
  8. FOLIC ACID. [Concomitant]
     Active Substance: FOLIC ACID
     Dosage: STRENGTH 5 MG

REACTIONS (4)
  - Mitral valve incompetence [Unknown]
  - Congestive cardiomyopathy [Unknown]
  - Swelling [Unknown]
  - Pain [Unknown]

NARRATIVE: CASE EVENT DATE: 2014
